FAERS Safety Report 17258715 (Version 1)
Quarter: 2020Q1

REPORT INFORMATION
  Report Type: Other
  Country: US (occurrence: US)
  Receive Date: 20200110
  Receipt Date: 20200110
  Transmission Date: 20200409
  Serious: Yes (Hospitalization, Disabling)
  Sender: FDA-Public Use
  Company Number: US-SUNRISE PHARMACEUTICAL, INC.-2078834

PATIENT
  Sex: Female

DRUGS (3)
  1. OXYCODONE HYDROCHLORIDE. [Suspect]
     Active Substance: OXYCODONE HYDROCHLORIDE
     Indication: BACK PAIN
     Route: 065
  2. CARISOPRODOL. [Concomitant]
     Active Substance: CARISOPRODOL
     Route: 065
  3. LORAZEPAM. [Concomitant]
     Active Substance: LORAZEPAM
     Route: 065

REACTIONS (8)
  - Gait disturbance [Unknown]
  - Respiratory failure [Unknown]
  - Abdominal pain [Unknown]
  - Narcotic bowel syndrome [Unknown]
  - Incorrect product administration duration [Recovered/Resolved]
  - Walking aid user [Unknown]
  - Weight decreased [Unknown]
  - Physical deconditioning [Unknown]
